FAERS Safety Report 22277987 (Version 2)
Quarter: 2023Q2

REPORT INFORMATION
  Report Type: Spontaneous
  Country: DE (occurrence: DE)
  Receive Date: 20230503
  Receipt Date: 20230608
  Transmission Date: 20230722
  Serious: Yes (Other)
  Sender: FDA-Public Use
  Company Number: DE-GSKCCFEMEA-Case-01719158_AE-70161

PATIENT

DRUGS (2)
  1. JEMPERLI [Suspect]
     Active Substance: DOSTARLIMAB-GXLY
     Indication: Endometrial cancer recurrent
     Dosage: UNK UNK, Q3W
     Dates: start: 202201
  2. JEMPERLI [Suspect]
     Active Substance: DOSTARLIMAB-GXLY
     Dosage: UNK UNK, Q6W
     Dates: end: 202302

REACTIONS (9)
  - Polyneuropathy [Not Recovered/Not Resolved]
  - Condition aggravated [Not Recovered/Not Resolved]
  - Hypoaesthesia [Not Recovered/Not Resolved]
  - Gait disturbance [Not Recovered/Not Resolved]
  - Fatigue [Not Recovered/Not Resolved]
  - Limb discomfort [Not Recovered/Not Resolved]
  - Axonal neuropathy [Not Recovered/Not Resolved]
  - Nerve conduction studies abnormal [Not Recovered/Not Resolved]
  - Discomfort [Not Recovered/Not Resolved]

NARRATIVE: CASE EVENT DATE: 20230201
